FAERS Safety Report 9213345 (Version 3)
Quarter: 2013Q2

REPORT INFORMATION
  Report Type: Report from Study
  Country: SG (occurrence: SG)
  Receive Date: 20130405
  Receipt Date: 20130530
  Transmission Date: 20140414
  Serious: Yes (Death, Hospitalization, Other)
  Sender: FDA-Public Use
  Company Number: PHHY2013SG031926

PATIENT
  Age: 17 Year
  Sex: Female

DRUGS (1)
  1. GLIVEC [Suspect]
     Indication: ACUTE LYMPHOCYTIC LEUKAEMIA
     Dosage: 400 MG PER DAY
     Dates: start: 20121205

REACTIONS (4)
  - Acute lymphocytic leukaemia [Fatal]
  - Device related infection [Recovered/Resolved]
  - Pneumothorax [Recovered/Resolved]
  - Procedural complication [Unknown]
